FAERS Safety Report 21694833 (Version 2)
Quarter: 2022Q4

REPORT INFORMATION
  Report Type: Spontaneous
  Country: TR (occurrence: TR)
  Receive Date: 20221207
  Receipt Date: 20221222
  Transmission Date: 20230113
  Serious: Yes (Other)
  Sender: FDA-Public Use
  Company Number: TR-JNJFOC-20221165324

PATIENT
  Age: 20 Year
  Sex: Male
  Weight: 60 kg

DRUGS (1)
  1. SIMPONI [Suspect]
     Active Substance: GOLIMUMAB
     Indication: Ankylosing spondylitis
     Route: 058
     Dates: start: 20220523, end: 20220623

REACTIONS (3)
  - Colitis ulcerative [Recovering/Resolving]
  - Dermal cyst [Recovering/Resolving]
  - Axillary mass [Recovering/Resolving]

NARRATIVE: CASE EVENT DATE: 20220616
